FAERS Safety Report 8376106-1 (Version None)
Quarter: 2012Q2

REPORT INFORMATION
  Report Type: 
  Country: None (occurrence: None)
  Receive Date: 20120522
  Receipt Date: 20120515
  Transmission Date: 20120825
  Serious: Yes (Hospitalization, Other)
  Sender: FDA-Public Use
  Company Number: US-BAYER-2012-021774

PATIENT
  Age: 41 Year
  Sex: Female
  Weight: 52.154 kg

DRUGS (6)
  1. SUDA-VENT [Concomitant]
     Dosage: UNK
     Route: 048
     Dates: start: 20070403
  2. NAPROXEN [Concomitant]
     Dosage: 500 MG, UNK
     Dates: start: 20070615
  3. YAZ [Suspect]
     Indication: MENSTRUAL CYCLE MANAGEMENT
     Dosage: UNK
     Dates: start: 20070101, end: 20070727
  4. OMNICEF [Concomitant]
     Dosage: UNK
     Route: 048
     Dates: start: 20070403
  5. IBUPROFEN [Concomitant]
     Dosage: UNK UNK, PRN
     Route: 048
     Dates: start: 20070727
  6. NAPROXEN [Concomitant]
     Dosage: UNK
     Dates: start: 20070727

REACTIONS (11)
  - PAIN IN EXTREMITY [None]
  - PAIN [None]
  - CHEST DISCOMFORT [None]
  - DEPRESSION [None]
  - EMOTIONAL DISTRESS [None]
  - PLEURITIC PAIN [None]
  - GENERAL PHYSICAL HEALTH DETERIORATION [None]
  - DYSPNOEA [None]
  - PULMONARY EMBOLISM [None]
  - DEEP VEIN THROMBOSIS [None]
  - ANXIETY [None]
